FAERS Safety Report 9372492 (Version 1)
Quarter: 2013Q2

REPORT INFORMATION
  Report Type: Report from Study
  Country: US (occurrence: US)
  Receive Date: 20130627
  Receipt Date: 20130627
  Transmission Date: 20140414
  Serious: Yes (Death)
  Sender: FDA-Public Use
  Company Number: US-MYLANLABS-2012S1026016

PATIENT
  Age: 53 Year
  Sex: Male
  Weight: 127.01 kg

DRUGS (2)
  1. CLOZAPINE TABLETS [Suspect]
     Route: 048
  2. CLONAZEPAM [Concomitant]

REACTIONS (3)
  - Death [Fatal]
  - Cough [Recovering/Resolving]
  - Nasopharyngitis [Recovering/Resolving]
